FAERS Safety Report 8801265 (Version 2)
Quarter: 2015Q1

REPORT INFORMATION
  Report Type: Report from Study
  Country: US (occurrence: US)
  Receive Date: 20120921
  Receipt Date: 20150302
  Transmission Date: 20150721
  Serious: Yes (Death)
  Sender: FDA-Public Use
  Company Number: US-ROCHE-1101945

PATIENT
  Sex: Female
  Weight: 95 kg

DRUGS (5)
  1. TAXOTERE [Concomitant]
     Active Substance: DOCETAXEL
     Dosage: ALSO RECEIVED ON 23/SEP/2005 IN 250 CC NORMAL SALINE
     Route: 042
  2. KYTRIL [Concomitant]
     Active Substance: GRANISETRON HYDROCHLORIDE
     Dosage: ALSO RECEIVED ON 23/SEP/2005
     Route: 042
  3. DECADRON [Concomitant]
     Active Substance: DEXAMETHASONE
     Dosage: ALSO RECEIVED ON 23/SEP/2005
     Route: 042
  4. AVASTIN [Suspect]
     Active Substance: BEVACIZUMAB
     Indication: BREAST CANCER
     Dosage: IN 100 CC NORMAL SALINE
     Route: 042
     Dates: start: 20050923
  5. ZOMETA [Concomitant]
     Active Substance: ZOLEDRONIC ACID
     Dosage: ALSO RECEIVED ON 23/SEP/2005 IN 100 CC NORMAL SALINE
     Route: 042

REACTIONS (7)
  - Septic shock [Fatal]
  - Fatigue [Unknown]
  - Off label use [Unknown]
  - Intestinal perforation [Fatal]
  - Diverticulitis [Fatal]
  - Pain [Unknown]
  - Nausea [Unknown]
